FAERS Safety Report 20114500 (Version 1)
Quarter: 2021Q4

REPORT INFORMATION
  Report Type: Spontaneous
  Country: US (occurrence: US)
  Receive Date: 20211125
  Receipt Date: 20211125
  Transmission Date: 20220303
  Serious: No
  Sender: FDA-Public Use
  Company Number: US-SA-SAC20211118000009

PATIENT
  Sex: Female
  Weight: 135 kg

DRUGS (2)
  1. AUBAGIO [Suspect]
     Active Substance: TERIFLUNOMIDE
     Indication: Multiple sclerosis
     Dosage: 14 MG, QD
     Route: 048
  2. AUBAGIO [Suspect]
     Active Substance: TERIFLUNOMIDE
     Dosage: HAS BEEN ADVISED BY MDO TO TAKE MEDICATION EVERY OTHER DAY VS EVERY 24 HOURS FOR A COUPLE OF WEEKS
     Route: 048

REACTIONS (2)
  - Hepatic enzyme increased [Unknown]
  - Product prescribing error [Unknown]
